FAERS Safety Report 7640914-2 (Version None)
Quarter: 2011Q3

REPORT INFORMATION
  Report Type: 
  Country: None (occurrence: None)
  Receive Date: 20110728
  Receipt Date: 20110728
  Transmission Date: 20111222
  Serious: No
  Sender: FDA-Public Use
  Company Number: None

PATIENT
  Age: 58 Year
  Sex: Female
  Weight: 77.11 kg

DRUGS (2)
  1. CYMBALTA [Concomitant]
     Route: 048
  2. ZYVOX [Suspect]
     Indication: STAPHYLOCOCCAL INFECTION
     Dosage: ONE
     Route: 048
     Dates: start: 20110510, end: 20110520

REACTIONS (3)
  - GAIT DISTURBANCE [None]
  - ARTHRALGIA [None]
  - PAIN IN EXTREMITY [None]
